FAERS Safety Report 8178520-6 (Version None)
Quarter: 2012Q1

REPORT INFORMATION
  Report Type: 
  Country: None (occurrence: None)
  Receive Date: 20120301
  Receipt Date: 20120223
  Transmission Date: 20120608
  Serious: Yes (Other)
  Sender: FDA-Public Use
  Company Number: PHHO2012DE003352

PATIENT
  Sex: Male
  Weight: 88 kg

DRUGS (6)
  1. CEFUROXIME [Suspect]
     Indication: PHARYNGITIS
     Dosage: 500 MG, BID
     Route: 048
     Dates: start: 20120221
  2. BLINDED NO TREATMENT RECEIVED [Suspect]
     Indication: PSORIASIS
     Dosage: DOUBLE BLINDED
     Route: 058
     Dates: start: 20120213, end: 20120216
  3. BLINDED AIN457 [Suspect]
     Indication: PSORIASIS
     Dosage: DOUBLE BLINDED
     Route: 058
     Dates: start: 20120213, end: 20120216
  4. VICTOZA [Concomitant]
     Indication: TYPE 2 DIABETES MELLITUS
     Dosage: 0.6 MG, UNK
     Route: 048
     Dates: start: 20110501
  5. BLINDED ETANERCEPT [Suspect]
     Indication: PSORIASIS
     Dosage: DOUBLE BLINDED
     Route: 058
     Dates: start: 20120213, end: 20120216
  6. PLACEBO [Suspect]
     Indication: PSORIASIS
     Dosage: DOUBLE BLINDED
     Route: 058
     Dates: start: 20120213, end: 20120216

REACTIONS (1)
  - LARYNGEAL OEDEMA [None]
